FAERS Safety Report 25934807 (Version 1)
Quarter: 2025Q4

REPORT INFORMATION
  Report Type: Report from Study
  Country: CA (occurrence: CA)
  Receive Date: 20251017
  Receipt Date: 20251017
  Transmission Date: 20260118
  Serious: Yes (Other)
  Sender: CELLTRION
  Company Number: CA-CELLTRION INC.-2025CA008182

PATIENT

DRUGS (2)
  1. INFLIXIMAB-DYYB [Suspect]
     Active Substance: INFLIXIMAB-DYYB
     Indication: Colitis ulcerative
     Dosage: 120 MG Q2 WEEKS
     Route: 058
     Dates: start: 20250211, end: 2025
  2. INFLIXIMAB-DYYB [Suspect]
     Active Substance: INFLIXIMAB-DYYB
     Dosage: 120.0 MILLIGRAM, 1 EVERY 2 WEEKS
     Route: 058

REACTIONS (4)
  - Immune-mediated adverse reaction [Unknown]
  - Episcleritis [Unknown]
  - Condition aggravated [Unknown]
  - Rash [Unknown]
